FAERS Safety Report 7575398-6 (Version None)
Quarter: 2011Q2

REPORT INFORMATION
  Report Type: 
  Country: None (occurrence: None)
  Receive Date: 20110627
  Receipt Date: 20110621
  Transmission Date: 20111010
  Serious: Yes (Hospitalization)
  Sender: FDA-Public Use
  Company Number: PHEH2009US16586

PATIENT
  Sex: Female

DRUGS (2)
  1. CHEMOTHERAPEUTICS NOS [Suspect]
  2. EXJADE [Suspect]
     Indication: LYMPHOCYTIC LEUKAEMIA
     Dosage: 750 MG DAILY
     Route: 065
     Dates: start: 20091118

REACTIONS (1)
  - NONSPECIFIC REACTION [None]
